FAERS Safety Report 6483752-9 (Version None)
Quarter: 2009Q4

REPORT INFORMATION
  Report Type: 
  Country: None (occurrence: None)
  Receive Date: 20091208
  Receipt Date: 20091208
  Transmission Date: 20100525
  Serious: No
  Sender: FDA-Public Use
  Company Number: None

PATIENT
  Age: 66 Year
  Sex: Male
  Weight: 99.7913 kg

DRUGS (2)
  1. COLD REMEDY NASAL GEL [Suspect]
     Dosage: Q4 HRS
  2. LIPITOR [Concomitant]

REACTIONS (1)
  - HYPOSMIA [None]
